FAERS Safety Report 6999988-4 (Version None)
Quarter: 2010Q3

REPORT INFORMATION
  Report Type: 
  Country: None (occurrence: None)
  Receive Date: 20100920
  Receipt Date: 20100204
  Transmission Date: 20110219
  Serious: No
  Sender: FDA-Public Use
  Company Number: US-ASTRAZENECA-2006UW21807

PATIENT
  Age: 42 Year
  Sex: Female
  Weight: 102.1 kg

DRUGS (18)
  1. SEROQUEL [Suspect]
     Indication: BIPOLAR DISORDER
     Dosage: STRENGTH: 25MG, 50MG, 100MG, 300MG. DOSE: 50MG TO 350MG DAILY.
     Route: 048
     Dates: start: 20000217
  2. SEROQUEL [Suspect]
     Route: 048
     Dates: start: 20020101
  3. KLONOPIN [Concomitant]
     Dosage: STRENGTH: 0.5, 1MG. DOSE: 1MG TO 2MG DAILY
     Route: 048
     Dates: start: 20030804
  4. KLONOPIN [Concomitant]
     Route: 048
     Dates: start: 20000101
  5. AMBIEN [Concomitant]
     Route: 048
     Dates: start: 20071016
  6. REQUIP [Concomitant]
     Indication: RESTLESS LEGS SYNDROME
     Route: 048
     Dates: start: 20071016
  7. ATIVAN [Concomitant]
     Indication: SLEEP DISORDER
     Route: 048
     Dates: start: 20030804
  8. ZOLOFT [Concomitant]
     Dosage: STRENGTH: 50MG, 100MG. DOSE: 50MG TO 100MG DAILY
     Route: 048
     Dates: start: 20041008
  9. XANAX [Concomitant]
     Indication: ANXIETY
     Dosage: STRENGTH: 1MG. DOSE: 0.5 TO 1 BID PRN.
     Route: 048
     Dates: start: 20010223
  10. ACTONEL [Concomitant]
     Route: 048
     Dates: start: 20050524
  11. GLUCOPHAGE [Concomitant]
     Route: 048
     Dates: start: 20050524
  12. DIOVAN [Concomitant]
     Indication: HYPERTENSION
     Dosage: 160 12.5 FOR DEPRESSION, DISPENSED IN STRENGTH OF 12.5
     Route: 048
     Dates: start: 20050524
  13. WELLBUTRIN [Concomitant]
     Indication: DEPRESSION
     Dosage: STRENGTH: 150. DOSE: DAILY
     Route: 048
     Dates: start: 20060109
  14. PREMARIN [Concomitant]
     Dates: start: 20060109
  15. DEPO-ESTRADIOL [Concomitant]
     Dates: start: 20060109
  16. FOSAMAX [Concomitant]
     Indication: OSTEOPENIA
     Dates: start: 19991222
  17. DEPAKOTE [Concomitant]
     Dosage: STRENGTH: 500. DOSE: 2 DAILY
     Dates: start: 20000217
  18. NEURONTIN [Concomitant]
     Dates: start: 20000217

REACTIONS (2)
  - OBESITY [None]
  - TYPE 2 DIABETES MELLITUS [None]
